FAERS Safety Report 7221007-5 (Version None)
Quarter: 2011Q1

REPORT INFORMATION
  Report Type: 
  Country: None (occurrence: None)
  Receive Date: 20110112
  Receipt Date: 20110107
  Transmission Date: 20110831
  Serious: Yes (Other)
  Sender: FDA-Public Use
  Company Number: FR-BRISTOL-MYERS SQUIBB COMPANY-15479389

PATIENT
  Age: 54 Year
  Sex: Male

DRUGS (4)
  1. INTELENCE [Concomitant]
  2. REYATAZ [Suspect]
  3. RITONAVIR [Concomitant]
  4. VIRAMUNE [Concomitant]

REACTIONS (2)
  - RENAL FAILURE ACUTE [None]
  - HEPATITIS C [None]
